FAERS Safety Report 7316455-9 (Version None)
Quarter: 2011Q1

REPORT INFORMATION
  Report Type: 
  Country: None (occurrence: None)
  Receive Date: 20110225
  Receipt Date: 20110216
  Transmission Date: 20110831
  Serious: Yes (Hospitalization)
  Sender: FDA-Public Use
  Company Number: US-ASTRAZENECA-2011SE08943

PATIENT
  Age: 30 Year
  Sex: Female

DRUGS (2)
  1. SEROQUEL XR [Suspect]
     Indication: BIPOLAR DISORDER
     Route: 048
     Dates: start: 20060101, end: 20101230
  2. SEROQUEL XR [Suspect]
     Route: 048

REACTIONS (5)
  - SUICIDAL IDEATION [None]
  - DEPRESSION [None]
  - DRUG DOSE OMISSION [None]
  - GASTRIC OPERATION [None]
  - INSOMNIA [None]
